FAERS Safety Report 24278765 (Version 2)
Quarter: 2025Q3

REPORT INFORMATION
  Report Type: Spontaneous
  Country: EU (occurrence: EU)
  Receive Date: 20240903
  Receipt Date: 20250818
  Transmission Date: 20251020
  Serious: Yes (Death, Other)
  Sender: MYLAN
  Company Number: EU-AstraZeneca-2024A133272

PATIENT
  Age: 52 Year
  Sex: Female

DRUGS (28)
  1. GEMCITABINE [Suspect]
     Active Substance: GEMCITABINE
     Indication: Adenocarcinoma
  2. GEMCITABINE [Suspect]
     Active Substance: GEMCITABINE
     Indication: Metastatic bronchial carcinoma
  3. GEFITINIB [Suspect]
     Active Substance: GEFITINIB
     Indication: Metastatic bronchial carcinoma
     Dates: start: 201805, end: 201902
  4. GEFITINIB [Suspect]
     Active Substance: GEFITINIB
     Indication: Adenocarcinoma
  5. CARBOPLATIN [Suspect]
     Active Substance: CARBOPLATIN
     Indication: Metastatic bronchial carcinoma
  6. CARBOPLATIN [Suspect]
     Active Substance: CARBOPLATIN
     Indication: Adenocarcinoma
  7. PEMETREXED [Suspect]
     Active Substance: PEMETREXED
     Indication: Metastatic bronchial carcinoma
  8. PEMETREXED [Suspect]
     Active Substance: PEMETREXED
     Indication: Adenocarcinoma
  9. ALECTINIB [Suspect]
     Active Substance: ALECTINIB
     Indication: Adenocarcinoma
     Dates: start: 202010, end: 202101
  10. ALECTINIB [Suspect]
     Active Substance: ALECTINIB
     Indication: Metastatic bronchial carcinoma
  11. OSIMERTINIB [Suspect]
     Active Substance: OSIMERTINIB
     Indication: Metastatic bronchial carcinoma
  12. OSIMERTINIB [Suspect]
     Active Substance: OSIMERTINIB
     Indication: Adenocarcinoma
  13. OSIMERTINIB [Suspect]
     Active Substance: OSIMERTINIB
     Indication: Metastatic bronchial carcinoma
  14. OSIMERTINIB [Suspect]
     Active Substance: OSIMERTINIB
     Indication: Adenocarcinoma
     Dates: start: 202101, end: 202105
  15. DABRAFENIB [Suspect]
     Active Substance: DABRAFENIB
     Indication: Adenocarcinoma
  16. DABRAFENIB [Suspect]
     Active Substance: DABRAFENIB
     Indication: Metastatic bronchial carcinoma
  17. TRAMETINIB [Suspect]
     Active Substance: TRAMETINIB
     Indication: Adenocarcinoma
  18. BEVACIZUMAB [Suspect]
     Active Substance: BEVACIZUMAB
     Indication: Adenocarcinoma
  19. BEVACIZUMAB [Suspect]
     Active Substance: BEVACIZUMAB
     Indication: Metastatic bronchial carcinoma
  20. PACLITAXEL [Suspect]
     Active Substance: PACLITAXEL
     Indication: Adenocarcinoma
  21. PACLITAXEL [Suspect]
     Active Substance: PACLITAXEL
     Indication: Metastatic bronchial carcinoma
  22. DABRAFENIB [Concomitant]
     Active Substance: DABRAFENIB
  23. PEMETREXED [Concomitant]
     Active Substance: PEMETREXED
  24. TRAMETINIB [Concomitant]
     Active Substance: TRAMETINIB
  25. ALECTINIB [Concomitant]
     Active Substance: ALECTINIB
  26. BEVACIZUMAB [Concomitant]
     Active Substance: BEVACIZUMAB
  27. PACLITAXEL [Concomitant]
     Active Substance: PACLITAXEL
  28. CARBOPLATIN [Concomitant]
     Active Substance: CARBOPLATIN

REACTIONS (5)
  - General physical health deterioration [Fatal]
  - Drug ineffective [Fatal]
  - Toxicity to various agents [Unknown]
  - Malignant neoplasm progression [Unknown]
  - Off label use [Unknown]
